FAERS Safety Report 11578179 (Version 1)
Quarter: 2015Q3

REPORT INFORMATION
  Report Type: Spontaneous
  Country: US (occurrence: US)
  Receive Date: 20150930
  Receipt Date: 20150930
  Transmission Date: 20151125
  Serious: Yes (Other)
  Sender: FDA-Public Use
  Company Number: US-JNJFOC-20150925078

PATIENT
  Sex: Female

DRUGS (2)
  1. XARELTO [Suspect]
     Active Substance: RIVAROXABAN
     Indication: THROMBOSIS
     Route: 048
     Dates: start: 20150910, end: 201509
  2. XARELTO [Suspect]
     Active Substance: RIVAROXABAN
     Indication: THROMBOSIS
     Dosage: ONE AT NIGHT
     Route: 048
     Dates: start: 201509, end: 201509

REACTIONS (7)
  - Adverse event [Unknown]
  - Frequent bowel movements [Unknown]
  - Head injury [Unknown]
  - Fall [Unknown]
  - Drug dose omission [Unknown]
  - Movement disorder [Unknown]
  - Malaise [Unknown]

NARRATIVE: CASE EVENT DATE: 201509
